FAERS Safety Report 7832604-8 (Version None)
Quarter: 2011Q4

REPORT INFORMATION
  Report Type: 
  Country: None (occurrence: None)
  Receive Date: 20111024
  Receipt Date: 20111014
  Transmission Date: 20120403
  Serious: No
  Sender: FDA-Public Use
  Company Number: US-BIOGENIDEC-2010BI034984

PATIENT
  Sex: Male

DRUGS (1)
  1. TYSABRI [Suspect]
     Indication: MULTIPLE SCLEROSIS
     Route: 042
     Dates: start: 20091002

REACTIONS (20)
  - ANTIPHOSPHOLIPID SYNDROME [None]
  - BURNING SENSATION [None]
  - MOBILITY DECREASED [None]
  - COLD SWEAT [None]
  - DEPRESSION [None]
  - CHEST PAIN [None]
  - MUSCULAR WEAKNESS [None]
  - PAIN IN EXTREMITY [None]
  - FACTOR V LEIDEN MUTATION [None]
  - FALL [None]
  - BACK PAIN [None]
  - PARAESTHESIA [None]
  - GAIT DISTURBANCE [None]
  - DIZZINESS [None]
  - HYPOAESTHESIA [None]
  - MULTIPLE SCLEROSIS RELAPSE [None]
  - MUSCLE SPASMS [None]
  - ANTIPHOSPHOLIPID ANTIBODIES [None]
  - THINKING ABNORMAL [None]
  - MEMORY IMPAIRMENT [None]
